FAERS Safety Report 11984745 (Version 1)
Quarter: 2016Q1

REPORT INFORMATION
  Report Type: Report from Study
  Country: US (occurrence: US)
  Receive Date: 20160201
  Receipt Date: 20160201
  Transmission Date: 20160526
  Serious: Yes (Other)
  Sender: FDA-Public Use
  Company Number: US-MEDTRONIC-1047167

PATIENT
  Age: 70 Year
  Sex: Male

DRUGS (2)
  1. BACLOFEN. [Suspect]
     Active Substance: BACLOFEN
     Indication: SPINAL PAIN
     Route: 037
  2. SUFENTA [Suspect]
     Active Substance: SUFENTANIL CITRATE
     Route: 037

REACTIONS (2)
  - Medical device site fibrosis [Recovered/Resolved with Sequelae]
  - Therapeutic response decreased [Recovered/Resolved with Sequelae]

NARRATIVE: CASE EVENT DATE: 20151109
